FAERS Safety Report 4653767-1 (Version None)
Quarter: 2005Q2

REPORT INFORMATION
  Report Type: 
  Country: None (occurrence: None)
  Receive Date: 20050505
  Receipt Date: 20050425
  Transmission Date: 20051028
  Serious: Yes (Hospitalization)
  Sender: FDA-Public Use
  Company Number: GB-BRISTOL-MYERS SQUIBB COMPANY-12944930

PATIENT
  Age: 71 Year
  Sex: Male

DRUGS (6)
  1. CISPLATIN [Suspect]
     Indication: NEOPLASM MALIGNANT
     Route: 042
     Dates: start: 20031107, end: 20031107
  2. NAVELBINE [Suspect]
     Indication: NEOPLASM MALIGNANT
     Route: 042
     Dates: start: 20031114, end: 20031114
  3. ONDANSETRON [Concomitant]
     Route: 042
     Dates: start: 20031107, end: 20031107
  4. MORPHINE [Concomitant]
  5. DEXAMETHASONE [Concomitant]
     Route: 048
     Dates: start: 20031107, end: 20031110
  6. TRAMADOL HCL [Concomitant]
     Dates: start: 20031101, end: 20031117

REACTIONS (2)
  - FEBRILE NEUTROPENIA [None]
  - RENAL FAILURE [None]
